FAERS Safety Report 21894917 (Version 2)
Quarter: 2023Q1

REPORT INFORMATION
  Report Type: Spontaneous
  Country: US (occurrence: US)
  Receive Date: 20230122
  Receipt Date: 20230203
  Transmission Date: 20230417
  Serious: Yes (Hospitalization, Other)
  Sender: FDA-Public Use
  Company Number: US-PRINSTON PHARMACEUTICAL INC.-2023PRN00022

PATIENT
  Sex: Male
  Weight: 63.039 kg

DRUGS (4)
  1. FUROSEMIDE [Suspect]
     Active Substance: FUROSEMIDE
     Indication: Product used for unknown indication
     Dosage: 80 MG, 1X/DAY (TWO TABLETS A DAY)
     Route: 048
  2. VYNDAMAX [Suspect]
     Active Substance: TAFAMIDIS
     Indication: Amyloidosis
     Dosage: 61 MG, 1X/DAY
  3. METOLAZONE [Suspect]
     Active Substance: METOLAZONE
     Dosage: 10 MG
     Route: 048
  4. METOLAZONE [Suspect]
     Active Substance: METOLAZONE
     Dosage: 15 MG
     Route: 048

REACTIONS (11)
  - Fluid retention [Unknown]
  - Amyloidosis [Not Recovered/Not Resolved]
  - Therapeutic product effect decreased [Unknown]
  - Weight increased [Unknown]
  - Gait disturbance [Unknown]
  - Malaise [Unknown]
  - Red blood cell count decreased [Unknown]
  - Haemoglobin decreased [Unknown]
  - Haematocrit decreased [Unknown]
  - Red cell distribution width increased [Unknown]
  - Body height decreased [Unknown]

NARRATIVE: CASE EVENT DATE: 20220101
